FAERS Safety Report 5141401-6 (Version None)
Quarter: 2006Q4

REPORT INFORMATION
  Report Type: 
  Country: None (occurrence: None)
  Receive Date: 20061101
  Receipt Date: 20061020
  Transmission Date: 20070319
  Serious: Yes (Hospitalization)
  Sender: FDA-Public Use
  Company Number: JP-GLAXOSMITHKLINE-B0444316A

PATIENT
  Age: 75 Year
  Sex: Male

DRUGS (11)
  1. SEREVENT [Suspect]
     Indication: ASTHMA
     Dosage: 50MCG TWICE PER DAY
     Route: 055
     Dates: start: 20040918
  2. FLUTIDE [Concomitant]
     Route: 055
  3. QVAR 40 [Concomitant]
     Route: 055
  4. CLARITHROMYCIN [Concomitant]
     Route: 048
  5. HERBAL MEDICATION [Concomitant]
     Route: 048
  6. MUCODYNE [Concomitant]
     Route: 048
  7. THEOLONG [Concomitant]
     Route: 048
  8. BAKUMONDO-TO [Concomitant]
     Route: 048
  9. DASEN [Concomitant]
     Route: 048
  10. NEUTAZE [Concomitant]
     Route: 048
  11. SPIRIVA [Concomitant]
     Route: 055

REACTIONS (1)
  - ASTHMA [None]
